FAERS Safety Report 7945864-X (Version None)
Quarter: 2011Q4

REPORT INFORMATION
  Report Type: 
  Country: None (occurrence: None)
  Receive Date: 20111129
  Receipt Date: 20111117
  Transmission Date: 20120403
  Serious: Yes (Other)
  Sender: FDA-Public Use
  Company Number: PHEH2011US07678

PATIENT
  Age: 85 Year
  Sex: Female
  Weight: 49.433 kg

DRUGS (10)
  1. VITAMIN B-12 [Concomitant]
     Dosage: UNK UKN, UNK
  2. CALCIUM WITH VITAMIN D [Concomitant]
     Dosage: UNK UKN, UNK
  3. RANITIDINE [Concomitant]
     Dosage: 150 MG, BID
  4. VITAMIN D [Concomitant]
     Dosage: UNK UKN, UNK
  5. SIMVASTATIN [Concomitant]
     Dosage: 40 MG, ONCE A DAY
  6. FISH OIL [Concomitant]
     Dosage: UNK UKN, UNK
  7. ASPIRIN [Concomitant]
     Dosage: 1 DF, UNK
     Route: 048
  8. EXELON [Suspect]
     Indication: AMNESIA
     Dosage: 1 DF, UNK
     Route: 062
     Dates: start: 20111018, end: 20111024
  9. CELEXA [Concomitant]
     Dosage: 10 MG, ONE DAY
  10. MULTI-VITAMIN [Concomitant]
     Dosage: 1 DF, UNK
     Route: 048

REACTIONS (5)
  - DISORIENTATION [None]
  - AGITATION [None]
  - FEAR [None]
  - COGNITIVE DISORDER [None]
  - MEMORY IMPAIRMENT [None]
